FAERS Safety Report 8986995 (Version 1)
Quarter: 2012Q4

REPORT INFORMATION
  Report Type: 
  Country: FR (occurrence: FR)
  Receive Date: 20121227
  Receipt Date: 20121227
  Transmission Date: 20130627
  Serious: Yes (Hospitalization)
  Sender: FDA-Public Use
  Company Number: PHHY2012FR118979

PATIENT
  Age: 59 Year
  Sex: Male

DRUGS (6)
  1. NEORAL [Suspect]
     Indication: PROCTOCOLITIS
     Dosage: 200 mg, BID
     Dates: start: 20121020, end: 20121117
  2. IMUREL [Suspect]
     Indication: PROCTOCOLITIS
     Dosage: UNK UKN, UNK
     Dates: start: 20121020, end: 20121119
  3. BACTRAMIN [Suspect]
     Dosage: UNK UKN, UNK
     Dates: start: 20121028, end: 20121119
  4. CALCIDOSE [Concomitant]
  5. SOLUPRED [Concomitant]
     Dosage: UNK UKN, UNK
  6. QUADRASA [Concomitant]

REACTIONS (12)
  - Acute febrile neutrophilic dermatosis [Not Recovered/Not Resolved]
  - Pyrexia [Recovering/Resolving]
  - Nausea [Unknown]
  - Rash pustular [Not Recovered/Not Resolved]
  - Eye pain [Recovered/Resolved]
  - General physical health deterioration [Unknown]
  - Decreased appetite [Unknown]
  - Asthenia [Unknown]
  - Anaemia [Unknown]
  - Lymphopenia [Unknown]
  - Hyperbilirubinaemia [Unknown]
  - Dizziness [Unknown]
